FAERS Safety Report 4964754-8 (Version None)
Quarter: 2006Q2

REPORT INFORMATION
  Report Type: 
  Country: None (occurrence: None)
  Receive Date: 20060406
  Receipt Date: 20060327
  Transmission Date: 20061013
  Serious: Yes (Death, Other)
  Sender: FDA-Public Use
  Company Number: US-NOVOPROD-251974

PATIENT
  Age: 66 Year
  Sex: Male
  Weight: 102 kg

DRUGS (11)
  1. NOVOSEVEN [Suspect]
     Indication: ILL-DEFINED DISORDER
     Dosage: 2.4 MG, SINGLE
     Route: 042
  2. NOVOSEVEN [Suspect]
     Dosage: 2.4 MG, SINGLE
     Route: 042
  3. NOVOSEVEN [Suspect]
     Dosage: 7 MG, SINGLE
     Route: 042
  4. APROTININ [Concomitant]
     Indication: ILL-DEFINED DISORDER
     Dosage: FULL DOSE
  5. HEPARIN [Concomitant]
     Indication: ILL-DEFINED DISORDER
     Dosage: 30000 U, UNK
  6. PROTAMINE SULFATE [Concomitant]
     Indication: ILL-DEFINED DISORDER
     Dosage: 250 UNK, UNK
  7. DDAVP                                   /USA/ [Concomitant]
     Indication: ILL-DEFINED DISORDER
     Dosage: 32 UG, UNK
  8. BLOOD CELLS, PACKED HUMAN [Concomitant]
     Indication: ILL-DEFINED DISORDER
     Dosage: 20 U, UNK
  9. FRESH FROZEN PLASMA [Concomitant]
     Indication: ILL-DEFINED DISORDER
     Dosage: 16 U, UNK
  10. PLATELETS [Concomitant]
     Indication: ILL-DEFINED DISORDER
     Dosage: 20 U, UNK
  11. KRIOPRECIPITAT [Concomitant]
     Indication: ILL-DEFINED DISORDER
     Dosage: 29 U, UNK

REACTIONS (5)
  - DEATH [None]
  - ENDOCARDITIS BACTERIAL [None]
  - HAEMORRHAGE [None]
  - HEPATIC CIRRHOSIS [None]
  - THERAPEUTIC RESPONSE DECREASED [None]
